FAERS Safety Report 6952442-8 (Version None)
Quarter: 2010Q3

REPORT INFORMATION
  Report Type: 
  Country: None (occurrence: None)
  Receive Date: 20100829
  Receipt Date: 20100503
  Transmission Date: 20110219
  Serious: No
  Sender: FDA-Public Use
  Company Number: US-ABBOTT-10P-163-0642711-00

PATIENT
  Sex: Female
  Weight: 72.64 kg

DRUGS (25)
  1. NIASPAN [Suspect]
     Indication: BLOOD CHOLESTEROL INCREASED
     Dosage: 500MG EVERY NIGHT
     Dates: start: 20100410, end: 20100430
  2. COUMADIN [Concomitant]
     Indication: ATRIAL FIBRILLATION
  3. SOTALOL [Concomitant]
     Indication: ATRIAL FIBRILLATION
  4. ETODOLAC [Concomitant]
     Indication: INFLAMMATION
  5. ETODOLAC [Concomitant]
     Indication: ARTHRITIS
  6. SIMVASTATIN [Concomitant]
     Indication: BLOOD CHOLESTEROL INCREASED
  7. CYMBALTA [Concomitant]
     Indication: FIBROMYALGIA
  8. TEMAZEPAM [Concomitant]
     Indication: INSOMNIA
  9. SYNTHROID [Concomitant]
     Indication: HYPOTHYROIDISM
  10. NEXIUM [Concomitant]
     Indication: PROPHYLAXIS
  11. NEXIUM [Concomitant]
     Indication: GASTRIC DISORDER
  12. TRAMADOL HCL [Concomitant]
     Indication: PAIN
  13. CYCLOBENZAPRINE [Concomitant]
     Indication: MUSCLE RELAXANT THERAPY
  14. ZYRTEC [Concomitant]
     Indication: HYPERSENSITIVITY
  15. FLONASE [Concomitant]
     Indication: RHINITIS
  16. VITAMIN B3 [Concomitant]
     Indication: VITAMIN B COMPLEX DEFICIENCY
  17. ASCORBIC ACID [Concomitant]
     Indication: PRODUCT USED FOR UNKNOWN INDICATION
  18. ASPIRIN [Concomitant]
     Indication: PRODUCT USED FOR UNKNOWN INDICATION
  19. ZINC [Concomitant]
     Indication: PRODUCT USED FOR UNKNOWN INDICATION
  20. CALCIUM WITH MAGNESIUM [Concomitant]
     Indication: PRODUCT USED FOR UNKNOWN INDICATION
  21. MAGNESIUM [Concomitant]
     Indication: PRODUCT USED FOR UNKNOWN INDICATION
  22. VITAMIN B COMPLEX CAP [Concomitant]
     Indication: PRODUCT USED FOR UNKNOWN INDICATION
  23. COENZYME Q10 [Concomitant]
     Indication: PRODUCT USED FOR UNKNOWN INDICATION
  24. RHODIOLA [Concomitant]
     Indication: PRODUCT USED FOR UNKNOWN INDICATION
  25. FISH OIL [Concomitant]
     Indication: PRODUCT USED FOR UNKNOWN INDICATION

REACTIONS (7)
  - ERYTHEMA [None]
  - FLUSHING [None]
  - HYPERAESTHESIA [None]
  - OROPHARYNGEAL PAIN [None]
  - PARAESTHESIA [None]
  - PRURITUS [None]
  - SKIN BURNING SENSATION [None]
